FAERS Safety Report 7327230-3 (Version None)
Quarter: 2011Q1

REPORT INFORMATION
  Report Type: 
  Country: None (occurrence: None)
  Receive Date: 20110302
  Receipt Date: 20110222
  Transmission Date: 20110831
  Serious: Yes (Hospitalization)
  Sender: FDA-Public Use
  Company Number: US-B.I. PHARMACEUTICALS,INC./RIDGEFIELD-2011-BP-02242BP

PATIENT
  Sex: Male

DRUGS (9)
  1. PRADAXA [Suspect]
     Indication: ATRIAL FIBRILLATION
     Dosage: 300 MG
     Route: 048
     Dates: start: 20101220, end: 20110211
  2. MULTAQ [Suspect]
     Indication: ATRIAL FIBRILLATION
  3. CRESTOR [Concomitant]
     Indication: BLOOD CHOLESTEROL INCREASED
     Dosage: 10 MG
  4. ALLOPURINOL [Concomitant]
     Indication: BLOOD CHOLESTEROL INCREASED
     Dosage: 300 MG
  5. PROPRANOLOL [Concomitant]
     Indication: SUPRAVENTRICULAR TACHYCARDIA
     Dosage: 40 MG
  6. JANUVIA [Suspect]
     Indication: GLUCOSE TOLERANCE IMPAIRED
  7. METFORMIN [Suspect]
     Indication: GLUCOSE TOLERANCE IMPAIRED
  8. FUROSEMIDE [Concomitant]
     Indication: BLOOD CHOLESTEROL INCREASED
  9. METFORMIN [Concomitant]
     Indication: BLOOD CHOLESTEROL INCREASED
     Dosage: 2000 MG

REACTIONS (7)
  - DIARRHOEA [None]
  - DIZZINESS [None]
  - PYREXIA [None]
  - HEADACHE [None]
  - FLUID RETENTION [None]
  - ASTHENIA [None]
  - MALAISE [None]
